FAERS Safety Report 6448871-1 (Version None)
Quarter: 2009Q4

REPORT INFORMATION
  Report Type: 
  Country: None (occurrence: None)
  Receive Date: 20091120
  Receipt Date: 20091110
  Transmission Date: 20100525
  Serious: Yes (Hospitalization)
  Sender: FDA-Public Use
  Company Number: US-PURDUE-USA-2009-0041006

PATIENT
  Weight: 93.6 kg

DRUGS (11)
  1. DILAUDID-HP [Suspect]
     Indication: PAIN
     Dosage: UNK
     Dates: start: 20090921
  2. PERCOCET [Suspect]
     Indication: PAIN
     Dosage: UNK
     Dates: start: 20090902, end: 20091002
  3. CLONAZEPAM [Concomitant]
  4. HALDOL [Concomitant]
  5. HEPARIN [Concomitant]
  6. SIMVASTATIN [Concomitant]
  7. LORAZEPAM [Concomitant]
  8. SERTRALINE HYDROCHLORIDE [Concomitant]
  9. MS CONTIN [Concomitant]
  10. DIPHENHYDRAMINE HCL [Concomitant]
  11. METHYLNALTREXONE [Concomitant]

REACTIONS (4)
  - DEHYDRATION [None]
  - ILEUS PARALYTIC [None]
  - INCONTINENCE [None]
  - PNEUMONIA [None]
